FAERS Safety Report 4903390-6 (Version None)
Quarter: 2006Q1

REPORT INFORMATION
  Report Type: 
  Country: None (occurrence: None)
  Receive Date: 20060203
  Receipt Date: 20060120
  Transmission Date: 20060701
  Serious: Yes (Life-Threatening, Hospitalization)
  Sender: FDA-Public Use
  Company Number: 2006MP000089

PATIENT
  Age: 56 Year
  Sex: Male

DRUGS (7)
  1. AGGRASTAT [Suspect]
     Indication: ACUTE CORONARY SYNDROME
     Dosage: 0.9 MG; X1; IV
     Route: 042
     Dates: start: 20050509, end: 20050509
  2. AGGRASTAT [Suspect]
     Indication: ACUTE CORONARY SYNDROME
     Dosage: 11.16 MG; IV
     Route: 042
     Dates: start: 20050509, end: 20050510
  3. PLAVIX [Suspect]
     Indication: ACUTE CORONARY SYNDROME
     Dosage: 75 MG; QD; PO
     Route: 048
     Dates: start: 20050510
  4. ENOXAPARIN SODIUM [Suspect]
     Indication: ACUTE CORONARY SYNDROME
     Dosage: 80 MG; QID; SC
     Route: 058
     Dates: start: 20050510, end: 20050510
  5. ACETAMINOPHEN [Concomitant]
  6. GLIQUIDONE [Concomitant]
  7. METFORMIN HCL [Concomitant]

REACTIONS (9)
  - BLOOD GLUCOSE INCREASED [None]
  - CARDIAC TAMPONADE [None]
  - CORONARY ARTERY PERFORATION [None]
  - HAEMATOCRIT DECREASED [None]
  - HAEMOGLOBIN DECREASED [None]
  - HYPOTENSION [None]
  - NAUSEA [None]
  - PROCEDURAL COMPLICATION [None]
  - WHITE BLOOD CELL COUNT INCREASED [None]
